FAERS Safety Report 5682702-2 (Version None)
Quarter: 2008Q1

REPORT INFORMATION
  Report Type: 
  Country: None (occurrence: None)
  Receive Date: 20080326
  Receipt Date: 20080326
  Transmission Date: 20080703
  Serious: No
  Sender: FDA-Public Use
  Company Number: None

PATIENT
  Age: 47 Year
  Sex: Male

DRUGS (8)
  1. INSULIN, ASPART [Suspect]
     Indication: TYPE 2 DIABETES MELLITUS
     Dosage: 10 UNITS TID/ SSI-M
  2. INSULIN, GLARGINE [Suspect]
     Dosage: 8 UNITS QHS
  3. AUGMENTIN '125' [Concomitant]
  4. LOMOTIL [Concomitant]
  5. METOPROLOL TARTRATE [Concomitant]
  6. NICOTINE [Concomitant]
  7. PSYLLIUM [Concomitant]
  8. ENOXAPARIN SODIUM [Concomitant]

REACTIONS (5)
  - BLOOD GLUCOSE DECREASED [None]
  - BLOOD GLUCOSE INCREASED [None]
  - FATIGUE [None]
  - HYPERHIDROSIS [None]
  - TREMOR [None]
